FAERS Safety Report 4441497-0 (Version None)
Quarter: 2004Q3

REPORT INFORMATION
  Report Type: 
  Country: None (occurrence: None)
  Receive Date: 20040728
  Receipt Date: 20040505
  Transmission Date: 20050211
  Serious: No
  Sender: FDA-Public Use
  Company Number: USA040566829

PATIENT
  Age: 10 Year
  Sex: Female

DRUGS (2)
  1. STRATTERA [Suspect]
     Indication: ATTENTION DEFICIT/HYPERACTIVITY DISORDER
     Dosage: 25 MG DAY
     Dates: start: 20040129
  2. ADDERALL 10 [Concomitant]

REACTIONS (3)
  - BACK PAIN [None]
  - CHEST PAIN [None]
  - PALPITATIONS [None]
